FAERS Safety Report 9071457 (Version 1)
Quarter: 2013Q1

REPORT INFORMATION
  Report Type: Spontaneous
  Country: US (occurrence: US)
  Receive Date: 20130206
  Receipt Date: 20130206
  Transmission Date: 20140127
  Serious: No
  Sender: FDA-Public Use
  Company Number: US-ALLERGAN-1211824US

PATIENT
  Age: 81 Year
  Sex: Female

DRUGS (6)
  1. RESTASIS? [Suspect]
     Indication: DRY EYE
     Dosage: 2 GTT, QHS
     Route: 047
  2. RESTASIS? [Suspect]
     Dosage: 2 GTT, QAM
     Route: 047
  3. RESTASIS? [Suspect]
     Dosage: 2 GTT, UNK
     Route: 047
  4. PERSAVISION [Concomitant]
     Indication: SUPPLEMENTATION THERAPY
     Dosage: UNK, QD
     Route: 048
  5. THERA-TEARS GEL CAP [Concomitant]
     Indication: SUPPLEMENTATION THERAPY
     Dosage: UNK, QD
     Route: 048
  6. BLOOD PRESSURE MEDICATION [Concomitant]
     Indication: HYPERTENSION
     Dosage: UNK

REACTIONS (5)
  - Fatigue [Recovered/Resolved]
  - Fatigue [Recovered/Resolved]
  - Fatigue [Recovered/Resolved]
  - Inappropriate schedule of drug administration [Unknown]
  - Vision blurred [Recovered/Resolved]
